FAERS Safety Report 24818881 (Version 1)
Quarter: 2025Q1

REPORT INFORMATION
  Report Type: Spontaneous
  Country: US (occurrence: None)
  Receive Date: 20250108
  Receipt Date: 20250108
  Transmission Date: 20250409
  Serious: No
  Sender: FDA-CTU
  Company Number: None

PATIENT
  Sex: Male

DRUGS (11)
  1. CYCLOSPORINE MODIFIED [Suspect]
     Active Substance: CYCLOSPORINE
     Indication: Acute graft versus host disease
     Route: 048
     Dates: start: 202312
  2. AMOXICILLIN [Concomitant]
     Active Substance: AMOXICILLIN
  3. BENADRYL ALL LIQ [Concomitant]
  4. CLONIDINE DIS [Concomitant]
  5. CLOCLOSPORINE SOL [Concomitant]
  6. HYOSCYAMINE DRO [Concomitant]
  7. JAKAFI [Concomitant]
     Active Substance: RUXOLITINIB
  8. KATERZIA [Concomitant]
     Active Substance: AMLODIPINE BENZOATE
  9. NYSTATIN [Concomitant]
     Active Substance: NYSTATIN
  10. PENTAMIDINE [Concomitant]
     Active Substance: PENTAMIDINE
  11. PROMETHAZINE SOL [Concomitant]

REACTIONS (1)
  - Nephrolithiasis [None]
